FAERS Safety Report 8394491-1 (Version None)
Quarter: 2012Q2

REPORT INFORMATION
  Report Type: 
  Country: None (occurrence: None)
  Receive Date: 20120530
  Receipt Date: 20120525
  Transmission Date: 20120825
  Serious: Yes (Other)
  Sender: FDA-Public Use
  Company Number: PHHY2012JP042098

PATIENT
  Sex: Female

DRUGS (2)
  1. DICLOFENAC SODIUM [Suspect]
     Indication: PAIN IN EXTREMITY
     Dosage: UNK
  2. LANSOPRAZOLE [Concomitant]
     Dosage: UNK

REACTIONS (6)
  - COLITIS [None]
  - INFLAMMATION [None]
  - DIARRHOEA [None]
  - GASTRIC MUCOSA ERYTHEMA [None]
  - GASTROINTESTINAL MUCOSAL DISORDER [None]
  - GASTRITIS EROSIVE [None]
